FAERS Safety Report 8996746 (Version 1)
Quarter: 2013Q1

REPORT INFORMATION
  Report Type: Spontaneous
  Country: US (occurrence: US)
  Receive Date: 20130104
  Receipt Date: 20130104
  Transmission Date: 20140127
  Serious: Yes (Hospitalization)
  Sender: FDA-Public Use
  Company Number: US-009507513-00072000

PATIENT
  Age: 8 Year
  Sex: Female

DRUGS (4)
  1. SINGULAIR [Suspect]
     Indication: RHINITIS ALLERGIC
     Dosage: 10 MG, UNK
     Route: 048
     Dates: start: 20000324, end: 20000604
  2. ADDERALL TABLETS [Concomitant]
  3. RISPERDAL [Concomitant]
  4. LITHIUM CARBONATE [Concomitant]

REACTIONS (2)
  - Hallucination [Recovered/Resolved]
  - Abnormal behaviour [Recovered/Resolved]
